FAERS Safety Report 12709220 (Version 1)
Quarter: 2016Q3

REPORT INFORMATION
  Report Type: Spontaneous
  Country: FR (occurrence: FR)
  Receive Date: 20160901
  Receipt Date: 20160901
  Transmission Date: 20161109
  Serious: Yes (Hospitalization)
  Sender: FDA-Public Use
  Company Number: FR-ABBVIE-16P-056-1715139-00

PATIENT
  Age: 39 Year
  Sex: Male

DRUGS (7)
  1. SERESTA [Suspect]
     Active Substance: OXAZEPAM
     Indication: SEDATIVE THERAPY
     Route: 048
     Dates: start: 20160111
  2. OMEPRAZOLE. [Concomitant]
     Active Substance: OMEPRAZOLE
     Indication: PRODUCT USED FOR UNKNOWN INDICATION
     Dates: start: 20160125, end: 20160125
  3. DEPAKINE CHRONO [Suspect]
     Active Substance: VALPROATE SODIUM
     Indication: EPILEPSY
     Dosage: EXTENDED RELEASE
     Route: 048
     Dates: start: 1999
  4. METEOSPASMYL [Concomitant]
     Active Substance: ALVERINE CITRATE\DIMETHICONE
     Indication: PRODUCT USED FOR UNKNOWN INDICATION
     Dates: start: 20160125, end: 20160125
  5. TEGRETOL [Suspect]
     Active Substance: CARBAMAZEPINE
     Indication: EPILEPSY
     Route: 048
     Dates: start: 1999
  6. NAPROXEN. [Concomitant]
     Active Substance: NAPROXEN
     Indication: PRODUCT USED FOR UNKNOWN INDICATION
     Dates: start: 20160125, end: 20160125
  7. AOTAL [Suspect]
     Active Substance: ACAMPROSATE CALCIUM
     Indication: ALCOHOL DETOXIFICATION
     Route: 048
     Dates: start: 20160111

REACTIONS (2)
  - Hyponatraemia [Recovering/Resolving]
  - Hyperkalaemia [Recovered/Resolved]

NARRATIVE: CASE EVENT DATE: 20160125
